FAERS Safety Report 5493930-3 (Version None)
Quarter: 2007Q4

REPORT INFORMATION
  Report Type: 
  Country: None (occurrence: None)
  Receive Date: 20071023
  Receipt Date: 20071015
  Transmission Date: 20080405
  Serious: Yes (Hospitalization)
  Sender: FDA-Public Use
  Company Number: US-MERCK-0705USA03634

PATIENT
  Age: 76 Year
  Sex: Female

DRUGS (3)
  1. FOSAMAX [Suspect]
     Indication: PROPHYLAXIS
     Route: 048
     Dates: start: 19980101, end: 20060601
  2. FOSAMAX [Suspect]
     Route: 048
     Dates: start: 19990701, end: 20000201
  3. FOSAMAX [Suspect]
     Route: 048

REACTIONS (9)
  - CAROTID ARTERIOSCLEROSIS [None]
  - DEPRESSION [None]
  - FIBROMA [None]
  - INTERVERTEBRAL DISC PROTRUSION [None]
  - JAW FRACTURE [None]
  - OSTEOMYELITIS [None]
  - OSTEONECROSIS [None]
  - SUBMANDIBULAR MASS [None]
  - WRONG TECHNIQUE IN DRUG USAGE PROCESS [None]
